FAERS Safety Report 7127983-3 (Version None)
Quarter: 2010Q4

REPORT INFORMATION
  Report Type: 
  Country: None (occurrence: None)
  Receive Date: 20101130
  Receipt Date: 20101125
  Transmission Date: 20110411
  Serious: Yes (Life-Threatening, Hospitalization)
  Sender: FDA-Public Use
  Company Number: BE-B.I. PHARMACEUTICALS,INC./RIDGEFIELD-2010-BL-00480BL

PATIENT
  Sex: Female

DRUGS (2)
  1. PRADAXA [Suspect]
     Indication: CEREBROVASCULAR ACCIDENT PROPHYLAXIS
     Dosage: 300 MG
  2. CLEXANE [Suspect]
     Indication: ISCHAEMIC STROKE
     Dosage: CURATIVE DOSE

REACTIONS (2)
  - ISCHAEMIC STROKE [None]
  - WRONG DRUG ADMINISTERED [None]
